FAERS Safety Report 4353186-1 (Version None)
Quarter: 2004Q2

REPORT INFORMATION
  Report Type: 
  Country: None (occurrence: None)
  Receive Date: 20040503
  Receipt Date: 20040503
  Transmission Date: 20050107
  Serious: Yes (Hospitalization)
  Sender: FDA-Public Use
  Company Number: None

PATIENT
  Age: 72 Year
  Sex: Male

DRUGS (8)
  1. GLIPIZDE [Suspect]
     Indication: DIABETES MELLITUS
     Dosage: 20 MG PO BID
     Route: 048
  2. CLOPIDOGREL BISULFATE [Suspect]
     Indication: TRANSIENT ISCHAEMIC ATTACK
     Dosage: 75 MG QD
  3. ASPIRIN [Suspect]
     Indication: TRANSIENT ISCHAEMIC ATTACK
     Dosage: 325 QD
  4. METFORMIN HCL [Concomitant]
  5. SIMVASTATIN [Concomitant]
  6. FELODIPINE [Concomitant]
  7. FOLIC THIAMINE [Concomitant]
  8. DOCUSATE NA [Concomitant]

REACTIONS (3)
  - ASTHENIA [None]
  - HYPOGLYCAEMIA [None]
  - RECTAL HAEMORRHAGE [None]
